FAERS Safety Report 17031584 (Version 1)
Quarter: 2019Q4

REPORT INFORMATION
  Report Type: Spontaneous
  Country: US (occurrence: US)
  Receive Date: 20191114
  Receipt Date: 20191114
  Transmission Date: 20200122
  Serious: No
  Sender: FDA-Public Use
  Company Number: US-PFIZER INC-2019492242

PATIENT
  Age: 42 Year
  Sex: Male
  Weight: 104.31 kg

DRUGS (1)
  1. PREGABALIN. [Suspect]
     Active Substance: PREGABALIN
     Indication: BURNING SENSATION
     Dosage: 150 MG, 4X/DAY
     Dates: start: 2019

REACTIONS (3)
  - Feeling abnormal [Unknown]
  - Peripheral swelling [Unknown]
  - Rash [Recovered/Resolved]
